FAERS Safety Report 13162351 (Version 5)
Quarter: 2017Q2

REPORT INFORMATION
  Report Type: Report from Study
  Country: US (occurrence: US)
  Receive Date: 20170130
  Receipt Date: 20170620
  Transmission Date: 20170830
  Serious: Yes (Other)
  Sender: FDA-Public Use
  Company Number: PHEH2017US002543

PATIENT
  Sex: Female
  Weight: 174 kg

DRUGS (1)
  1. ENTRESTO [Suspect]
     Active Substance: SACUBITRIL\VALSARTAN
     Indication: CARDIAC FAILURE CONGESTIVE
     Dosage: 50 MG, BID (24/26 MG)
     Route: 048
     Dates: start: 20161115

REACTIONS (4)
  - Memory impairment [Unknown]
  - Endometrial adenocarcinoma [Recovering/Resolving]
  - Diarrhoea [Unknown]
  - Postmenopausal haemorrhage [Recovered/Resolved]
